FAERS Safety Report 9186229 (Version 1)
Quarter: 2013Q1

REPORT INFORMATION
  Report Type: Spontaneous
  Country: US (occurrence: None)
  Receive Date: 20120628
  Receipt Date: 20120628
  Transmission Date: 20140127
  Serious: Yes (Other)
  Sender: FDA-Public Use
  Company Number: PHHY2011US65117

PATIENT
  Age: 90 Year
  Sex: Female

DRUGS (9)
  1. RECLAST (ZOLEDRONATE) SOLUTION FOR INJECTION [Suspect]
     Dosage: , INTRAVENOUS
     Route: 042
  2. METHYLPREDNISOLONE [Concomitant]
  3. CORTISONE (CORTISONE) [Concomitant]
  4. ANTIHYPERTENSIVE DRUGS [Concomitant]
  5. SYNTHROID (LEVOTHYROXINE SODIUM) [Concomitant]
  6. CITRACAL [Concomitant]
  7. LUTEIN [Concomitant]
  8. VITAMIN D (ERGOCALCIFEROL) [Concomitant]
  9. NEXIUM (ESOMEPRAZOLE MAGNESIUM) [Concomitant]

REACTIONS (6)
  - Oedema peripheral [None]
  - Rash generalised [None]
  - Pain [None]
  - Rash erythematous [None]
  - Dry skin [None]
  - Melanocytic naevus [None]
